FAERS Safety Report 5477617-9 (Version None)
Quarter: 2007Q4

REPORT INFORMATION
  Report Type: 
  Country: None (occurrence: None)
  Receive Date: 20071005
  Receipt Date: 20071002
  Transmission Date: 20080405
  Serious: Yes (Life-Threatening, Hospitalization, Disabling)
  Sender: FDA-Public Use
  Company Number: US-ELI_LILLY_AND_COMPANY-US200707001048

PATIENT
  Sex: Male
  Weight: 195.1 kg

DRUGS (11)
  1. SOMATROPIN [Suspect]
     Indication: HYPOPITUITARISM
     Dosage: 0.43 MG, DAILY (1/D)
     Dates: start: 20030307
  2. LEVOTHYROXINE SODIUM [Concomitant]
     Indication: HYPOPITUITARISM
     Dosage: 175 UG, UNK
  3. ANDRODERM [Concomitant]
     Dosage: 5 MG, UNK
     Route: 023
  4. HYDROCORTISONE [Concomitant]
     Dosage: 20 MG, EACH MORNING
  5. HYDROCORTISONE [Concomitant]
     Dosage: 10 MG, EACH EVENING
  6. LASIX [Concomitant]
     Indication: OEDEMA
     Dosage: 40 MG, DAILY (1/D)
  7. ALDACTACINE [Concomitant]
     Indication: HYPERTENSION
     Dosage: 25 MG, UNK
  8. COUMADIN [Concomitant]
     Indication: DEEP VEIN THROMBOSIS
     Dosage: 10 MG, UNK
  9. PRAVACHOL [Concomitant]
     Indication: BLOOD CHOLESTEROL INCREASED
     Dosage: 50 MG, UNK
  10. TRAMADOL HCL [Concomitant]
     Indication: PAIN
     Dosage: 50 MG, UNK
  11. LIDODERM [Concomitant]
     Indication: PAIN
     Dosage: 5 %, UNK

REACTIONS (2)
  - CEREBROVASCULAR ACCIDENT [None]
  - PNEUMONIA [None]
